FAERS Safety Report 7571161-0 (Version None)
Quarter: 2011Q2

REPORT INFORMATION
  Report Type: 
  Country: None (occurrence: None)
  Receive Date: 20110624
  Receipt Date: 20110621
  Transmission Date: 20111010
  Serious: Yes (Other)
  Sender: FDA-Public Use
  Company Number: GB-PFIZER INC-2011136534

PATIENT
  Sex: Female

DRUGS (2)
  1. PHENYTOIN SODIUM [Suspect]
     Dosage: 50 MG, UNK
  2. PHENYTOIN SODIUM [Suspect]
     Dosage: 100 MG, UNK
     Dates: start: 20110201

REACTIONS (1)
  - TOXICITY TO VARIOUS AGENTS [None]
